FAERS Safety Report 7844667-4 (Version None)
Quarter: 2011Q4

REPORT INFORMATION
  Report Type: 
  Country: None (occurrence: None)
  Receive Date: 20111025
  Receipt Date: 20111017
  Transmission Date: 20120403
  Serious: Yes (Life-Threatening, Hospitalization, Other)
  Sender: FDA-Public Use
  Company Number: DE-BAYER-2011-013424

PATIENT
  Age: 37 Year
  Sex: Female
  Weight: 56 kg

DRUGS (3)
  1. MIRENA [Suspect]
     Indication: CONTRACEPTION
     Dosage: UNK
     Route: 015
     Dates: start: 20050501
  2. VITAMIN B-12 [Concomitant]
     Indication: ANAEMIA MACROCYTIC
  3. MIRENA [Suspect]
     Dosage: 20 MCG/24HR, CONT
     Dates: start: 20100601, end: 20110201

REACTIONS (24)
  - DEPRESSION [None]
  - SLEEP DISORDER [None]
  - MOOD ALTERED [None]
  - INFERIORITY COMPLEX [None]
  - ANHEDONIA [None]
  - MINERAL METABOLISM DISORDER [None]
  - EMOTIONAL DISTRESS [None]
  - NERVOUSNESS [None]
  - SUICIDAL IDEATION [None]
  - MUSCLE TIGHTNESS [None]
  - PERSONALITY CHANGE [None]
  - WEIGHT INCREASED [None]
  - SKIN DISORDER [None]
  - ALOPECIA [None]
  - PANIC ATTACK [None]
  - TERMINAL INSOMNIA [None]
  - APHASIA [None]
  - LIBIDO DECREASED [None]
  - HORMONE LEVEL ABNORMAL [None]
  - HYPERHIDROSIS [None]
  - ANXIETY [None]
  - BACK PAIN [None]
  - CRYING [None]
  - SUICIDE ATTEMPT [None]
